FAERS Safety Report 7727566-8 (Version None)
Quarter: 2011Q3

REPORT INFORMATION
  Report Type: 
  Country: None (occurrence: None)
  Receive Date: 20110902
  Receipt Date: 20110826
  Transmission Date: 20111222
  Serious: Yes (Hospitalization, Other)
  Sender: FDA-Public Use
  Company Number: NL-MPIJNJ-2011-03881

PATIENT

DRUGS (2)
  1. DEXAMETHASONE [Suspect]
     Indication: PLASMACYTOMA
  2. VELCADE [Suspect]
     Indication: PLASMACYTOMA

REACTIONS (4)
  - STAPHYLOCOCCAL ABSCESS [None]
  - PYOMYOSITIS [None]
  - THROMBOCYTOPENIA [None]
  - NEUTROPENIA [None]
